FAERS Safety Report 8011722-8 (Version None)
Quarter: 2011Q4

REPORT INFORMATION
  Report Type: 
  Country: None (occurrence: None)
  Receive Date: 20111228
  Receipt Date: 20111206
  Transmission Date: 20120403
  Serious: Yes (Hospitalization)
  Sender: FDA-Public Use
  Company Number: US-BAYER-2011-085609

PATIENT
  Age: 32 Year
  Sex: Female
  Weight: 97 kg

DRUGS (5)
  1. DROSPIRENONE AND ETHINYL ESTRADIOL [Suspect]
     Indication: CONTRACEPTION
     Dosage: UNK
     Dates: start: 20041129, end: 20100806
  2. PRILOSEC [Concomitant]
  3. YASMIN [Suspect]
     Indication: CONTRACEPTION
     Dosage: UNK
     Dates: start: 20041129, end: 20100806
  4. COREG [Concomitant]
  5. SYNTHROID [Concomitant]

REACTIONS (9)
  - CHOLECYSTITIS CHRONIC [None]
  - PAIN [None]
  - CHOLECYSTITIS ACUTE [None]
  - INJURY [None]
  - ABDOMINAL PAIN [None]
  - ANXIETY [None]
  - DEPRESSION [None]
  - WEIGHT INCREASED [None]
  - FATIGUE [None]
